FAERS Safety Report 11884604 (Version 1)
Quarter: 2016Q1

REPORT INFORMATION
  Report Type: Spontaneous
  Country: US (occurrence: US)
  Receive Date: 20160104
  Receipt Date: 20160104
  Transmission Date: 20160526
  Serious: No
  Sender: FDA-Public Use
  Company Number: US-LUPIN PHARMACEUTICALS INC.-E2B_00004662

PATIENT
  Age: 19 Year
  Sex: Female
  Weight: 79.45 kg

DRUGS (1)
  1. DROSPIRENONE AND ETHINYL ESTRADIOL TABLETS USP, 3 MG/ 0.03 MG [Suspect]
     Active Substance: DROSPIRENONE\ETHINYL ESTRADIOL
     Indication: PROPHYLAXIS
     Dosage: 3 MG/0.03 MG
     Route: 048

REACTIONS (1)
  - Inappropriate schedule of drug administration [Unknown]

NARRATIVE: CASE EVENT DATE: 20151212
